FAERS Safety Report 25509389 (Version 1)
Quarter: 2025Q3

REPORT INFORMATION
  Report Type: Spontaneous
  Country: US (occurrence: None)
  Receive Date: 20250702
  Receipt Date: 20250702
  Transmission Date: 20251021
  Serious: No
  Sender: FDA-CTU
  Company Number: None

PATIENT

DRUGS (1)
  1. .DELTA.9-TETRAHYDROCANNABINOL\HERBALS [Suspect]
     Active Substance: .DELTA.9-TETRAHYDROCANNABINOL\HERBALS

REACTIONS (9)
  - Product contamination microbial [None]
  - Chemical poisoning [None]
  - Cough [None]
  - Vomiting [None]
  - Substance use [None]
  - Toxicity to various agents [None]
  - Product advertising issue [None]
  - Legal problem [None]
  - Product use in unapproved indication [None]
